FAERS Safety Report 20577533 (Version 2)
Quarter: 2022Q3

REPORT INFORMATION
  Report Type: Spontaneous
  Country: NL (occurrence: NL)
  Receive Date: 20220310
  Receipt Date: 20220805
  Transmission Date: 20221026
  Serious: Yes (Hospitalization, Other)
  Sender: FDA-Public Use
  Company Number: NL-NOVARTISPH-NVSC2022NL054262

PATIENT
  Age: 67 Year
  Sex: Male

DRUGS (1)
  1. OLMESARTAN MEDOXOMIL [Suspect]
     Active Substance: OLMESARTAN MEDOXOMIL
     Indication: Infection
     Dosage: 160 MG, QD
     Route: 065

REACTIONS (7)
  - Bone marrow failure [Recovered/Resolved]
  - Pancytopenia [Recovered/Resolved]
  - Normocytic anaemia [Recovered/Resolved]
  - Respiratory failure [Unknown]
  - Infection [Unknown]
  - Overdose [Unknown]
  - Product use in unapproved indication [Unknown]
